FAERS Safety Report 7485156-9 (Version None)
Quarter: 2011Q2

REPORT INFORMATION
  Report Type: 
  Country: None (occurrence: None)
  Receive Date: 20110517
  Receipt Date: 20100406
  Transmission Date: 20111010
  Serious: No
  Sender: FDA-Public Use
  Company Number: US-NOVEN-ALL1-2010-02130

PATIENT

DRUGS (8)
  1. WELLBUTRIN [Concomitant]
     Dosage: 300 MG, 1X/DAY:QD
     Route: 048
  2. RISPERDAL [Concomitant]
     Dosage: .5 MG, 1X/DAY:QD
     Route: 048
  3. FLUOXETINE [Concomitant]
     Dosage: 20 MG, 1X/DAY:QD
     Route: 048
  4. DAYTRANA [Suspect]
     Dosage: 10 MG, 1X/DAY:QD
     Route: 062
     Dates: start: 20100405
  5. WELLBUTRIN [Concomitant]
  6. NUVIGIL [Concomitant]
     Dosage: UNK MG, UNKNOWN
     Route: 048
     Dates: start: 20100101
  7. VALTREX [Concomitant]
     Dosage: 500 MG, 1X/DAY:QD
     Route: 048
  8. TOPAMAX [Concomitant]
     Dosage: 100 MG, 3X/DAY:TID
     Route: 048

REACTIONS (3)
  - PRODUCT QUALITY ISSUE [None]
  - WRONG TECHNIQUE IN DRUG USAGE PROCESS [None]
  - PAIN IN EXTREMITY [None]
